FAERS Safety Report 17119606 (Version 5)
Quarter: 2021Q1

REPORT INFORMATION
  Report Type: Report from Study
  Country: US (occurrence: US)
  Receive Date: 20191206
  Receipt Date: 20210317
  Transmission Date: 20210419
  Serious: Yes (Death, Hospitalization)
  Sender: FDA-Public Use
  Company Number: US-ROCHE-2484242

PATIENT
  Age: 63 Year
  Sex: Female
  Weight: 51.43 kg

DRUGS (15)
  1. OMEPRAZOLE. [Concomitant]
     Active Substance: OMEPRAZOLE
  2. DULCOLAX (BISACODYL) [Concomitant]
     Active Substance: BISACODYL
  3. LEVOTHYROXINE. [Concomitant]
     Active Substance: LEVOTHYROXINE
  4. LOSARTAN. [Concomitant]
     Active Substance: LOSARTAN
  5. ONDANSETRON [Concomitant]
     Active Substance: ONDANSETRON
  6. HYDRALAZINE [Concomitant]
     Active Substance: HYDRALAZINE HYDROCHLORIDE
  7. SODIUM CHLORIDE. [Concomitant]
     Active Substance: SODIUM CHLORIDE
  8. LOSARTAN. [Concomitant]
     Active Substance: LOSARTAN
  9. ATEZOLIZUMAB. [Suspect]
     Active Substance: ATEZOLIZUMAB
     Indication: METASTATIC NEOPLASM
     Route: 042
     Dates: start: 20191022
  10. CABOZANTINIB [Suspect]
     Active Substance: CABOZANTINIB
     Indication: METASTATIC NEOPLASM
     Route: 048
     Dates: start: 20191022
  11. LIOTHYRONINE [Concomitant]
     Active Substance: LIOTHYRONINE
  12. DILTIAZEM. [Concomitant]
     Active Substance: DILTIAZEM
  13. ALENDRONATE SODIUM. [Concomitant]
     Active Substance: ALENDRONATE SODIUM
  14. TRAMADOL. [Concomitant]
     Active Substance: TRAMADOL
  15. FUROSEMIDE. [Concomitant]
     Active Substance: FUROSEMIDE

REACTIONS (5)
  - Palmar-plantar erythrodysaesthesia syndrome [Not Recovered/Not Resolved]
  - Disease progression [Fatal]
  - Skin ulcer [Not Recovered/Not Resolved]
  - Liver function test increased [Not Recovered/Not Resolved]
  - Ascites [Not Recovered/Not Resolved]

NARRATIVE: CASE EVENT DATE: 20191113
